FAERS Safety Report 24105187 (Version 2)
Quarter: 2024Q4

REPORT INFORMATION
  Report Type: Spontaneous
  Country: SE (occurrence: SE)
  Receive Date: 20240717
  Receipt Date: 20241018
  Transmission Date: 20250115
  Serious: Yes (Other)
  Sender: VERTEX
  Company Number: None

PATIENT
  Age: 15 Year
  Sex: Male

DRUGS (12)
  1. ELEXACAFTOR\IVACAFTOR\TEZACAFTOR [Suspect]
     Active Substance: ELEXACAFTOR\IVACAFTOR\TEZACAFTOR
     Indication: Cystic fibrosis
     Dosage: UNK
     Route: 048
     Dates: start: 20240318, end: 20240603
  2. KALYDECO [Suspect]
     Active Substance: IVACAFTOR
     Indication: Cystic fibrosis
     Dosage: 1 TABLET AT NIGHT
     Route: 048
     Dates: start: 20221221, end: 20240603
  3. CREON [Concomitant]
     Active Substance: PANCRELIPASE AMYLASE\PANCRELIPASE LIPASE\PANCRELIPASE PROTEASE
     Dosage: 2-3 CAPSULES PER MEAL
     Route: 048
     Dates: start: 20090219
  4. CEFTAZIDIME [Concomitant]
     Active Substance: CEFTAZIDIME
     Dosage: 2 GRAM, TID
     Route: 042
     Dates: start: 20230424, end: 20230503
  5. NASONEX [Concomitant]
     Active Substance: MOMETASONE FUROATE
     Dosage: 50 MCG/DOSE (I PUFF), 2 UNITS PER DAY
     Route: 045
  6. PULMOZYME [Concomitant]
     Active Substance: DORNASE ALFA
     Dosage: 2.5 ML IN PM
     Route: 055
  7. OMEPRAZOLE [Concomitant]
     Active Substance: OMEPRAZOLE
     Dosage: 10 MG, QD
     Dates: start: 20201101
  8. MUCOCLEAR [Concomitant]
     Dosage: 1 INHALATIONN 2 TIMES PER DAY
     Dates: start: 20210112
  9. DEKA [Concomitant]
     Dosage: 200 MICROGRAM, PRN
     Route: 048
     Dates: start: 20171205
  10. ALBUTEROL SULFATE [Concomitant]
     Active Substance: ALBUTEROL SULFATE
     Dosage: 200 MCG/DOSE, 1 DOSE PRN
     Dates: start: 20190214
  11. COLISTIMETHATE SODIUM [Concomitant]
     Active Substance: COLISTIMETHATE SODIUM
     Dosage: 1 DOSE (125 MG) X 2
     Dates: start: 20230504, end: 20230604
  12. TOBRAMYCIN SULFATE [Concomitant]
     Active Substance: TOBRAMYCIN SULFATE
     Dosage: 500 MG
     Route: 042
     Dates: start: 20230424, end: 20230503

REACTIONS (1)
  - Hepatic necrosis [Recovered/Resolved]

NARRATIVE: CASE EVENT DATE: 20240325
